FAERS Safety Report 4433615-5 (Version None)
Quarter: 2004Q3

REPORT INFORMATION
  Report Type: 
  Country: None (occurrence: None)
  Receive Date: 20040826
  Receipt Date: 20040818
  Transmission Date: 20050211
  Serious: Yes (Other)
  Sender: FDA-Public Use
  Company Number: US-BRISTOL-MYERS SQUIBB COMPANY-12674313

PATIENT

DRUGS (1)
  1. CARMUSTINE [Suspect]

REACTIONS (5)
  - DERMATITIS ALLERGIC [None]
  - ERYTHEMA [None]
  - LEUKOPENIA [None]
  - SKIN BURNING SENSATION [None]
  - TELANGIECTASIA [None]
